FAERS Safety Report 7378611-3 (Version None)
Quarter: 2011Q1

REPORT INFORMATION
  Report Type: 
  Country: None (occurrence: None)
  Receive Date: 20110328
  Receipt Date: 20110317
  Transmission Date: 20110831
  Serious: Yes (Hospitalization, Other)
  Sender: FDA-Public Use
  Company Number: JP-ROCHE-739940

PATIENT
  Sex: Female

DRUGS (31)
  1. FLUOROURACIL [Suspect]
     Dosage: ROUTE:INTRAVENOUS BOLUS
     Route: 041
     Dates: start: 20090710
  2. FLUOROURACIL [Suspect]
     Dosage: INTRAVENOUS BOLUS
     Route: 041
     Dates: start: 20091111, end: 20100101
  3. FLUOROURACIL [Suspect]
     Dosage: ROUTE: INTRAVENOUS BOLUS
     Route: 041
     Dates: start: 20100811, end: 20101119
  4. LEUCOVORIN CALCIUM [Suspect]
     Route: 041
     Dates: start: 20091111, end: 20100101
  5. SELBEX [Concomitant]
     Dosage: REPORTED AS : SELBEX (TEPRENONE)
     Route: 048
  6. GABAPEN [Concomitant]
     Route: 048
  7. BEVACIZUMAB [Suspect]
     Route: 041
     Dates: start: 20101215, end: 20101215
  8. IRINOTECAN HYDROCHLORIDE [Suspect]
     Dosage: REPORTED AS: CAMPTO(IRINOTECAN HYDROCHLORIDE)
     Route: 041
     Dates: start: 20100811, end: 20101119
  9. FLUOROURACIL [Suspect]
     Dosage: ROUTE:INTRAVENOUS DRIP
     Route: 041
     Dates: start: 20100811, end: 20101121
  10. LEUCOVORIN CALCIUM [Suspect]
     Indication: COLON CANCER
     Route: 041
     Dates: start: 20090710
  11. DAI-KENCHU-TO [Concomitant]
     Dosage: REPORTED AS:DAI-KENCHU-TO(DAI-KENCHU-TO), FORM: GRANULATED POWDER
     Route: 048
  12. BEVACIZUMAB [Suspect]
     Route: 041
     Dates: start: 20091111, end: 20100101
  13. BEVACIZUMAB [Suspect]
     Route: 041
     Dates: start: 20100811, end: 20101119
  14. FLUOROURACIL [Suspect]
     Indication: COLON CANCER
     Route: 041
     Dates: start: 20090710
  15. FLUOROURACIL [Suspect]
     Route: 041
     Dates: start: 20091111, end: 20100101
  16. FLUOROURACIL [Suspect]
     Route: 041
     Dates: start: 20101215, end: 20101217
  17. MAGNESIUM OXIDE [Concomitant]
     Indication: COLON CANCER
     Route: 048
  18. VOLTAREN [Concomitant]
     Route: 048
  19. TEPRENONE [Concomitant]
     Route: 048
  20. LEUCOVORIN CALCIUM [Suspect]
     Route: 041
     Dates: start: 20101215, end: 20101215
  21. PYRIDOXAL PHOSPHATE [Concomitant]
     Dosage: REPORTED AS:PYDOXAL TAB(PYRIDOXAL PHOSPHATE
     Route: 048
  22. TAKEPRON [Concomitant]
     Route: 048
  23. DICLOFENAC [Concomitant]
     Route: 048
  24. BEVACIZUMAB [Suspect]
     Indication: COLON CANCER
     Route: 041
     Dates: start: 20090710
  25. KETOPROFEN [Concomitant]
     Dosage: PROPERLY
     Route: 062
  26. LAC-B [Concomitant]
     Route: 048
  27. LEUCOVORIN CALCIUM [Suspect]
     Dosage: REPORTED AS: LEVOFOLINATE(LEVOFOLINATE CALCIUM)
     Route: 041
     Dates: start: 20100811, end: 20101119
  28. OXYCONTIN [Concomitant]
     Route: 048
  29. IRINOTECAN HYDROCHLORIDE [Suspect]
     Route: 041
     Dates: start: 20101215, end: 20101215
  30. FLUOROURACIL [Suspect]
     Route: 041
     Dates: start: 20101215, end: 20101215
  31. HACHIAZULE [Concomitant]
     Dosage: OROPHARINGEAL
     Route: 050

REACTIONS (10)
  - DEHYDRATION [None]
  - SEPSIS [None]
  - SPINAL COMPRESSION FRACTURE [None]
  - PERITONITIS [None]
  - DIARRHOEA [None]
  - LARGE INTESTINE PERFORATION [None]
  - URINARY TRACT INFECTION [None]
  - BACK PAIN [None]
  - NAUSEA [None]
  - ABDOMINAL INFECTION [None]
